FAERS Safety Report 9052607 (Version 1)
Quarter: 2013Q1

REPORT INFORMATION
  Report Type: Spontaneous
  Country: US (occurrence: US)
  Receive Date: 20130207
  Receipt Date: 20130207
  Transmission Date: 20140127
  Serious: Yes (Other)
  Sender: FDA-Public Use
  Company Number: US-TEVA-384308USA

PATIENT
  Sex: Female
  Weight: 98.97 kg

DRUGS (20)
  1. QVAR [Suspect]
     Indication: ASTHMA
     Dosage: BID
     Route: 055
     Dates: start: 201210, end: 201211
  2. QVAR [Suspect]
     Indication: CHRONIC OBSTRUCTIVE PULMONARY DISEASE
  3. SPIRIVA [Concomitant]
     Indication: ASTHMA
     Dosage: 1 CAPSULE QD
     Route: 055
  4. SPIRIVA [Concomitant]
     Indication: CHRONIC OBSTRUCTIVE PULMONARY DISEASE
  5. COMBIVENT [Concomitant]
     Indication: ASTHMA
     Dosage: PRN
     Route: 055
  6. COMBIVENT [Concomitant]
     Indication: CHRONIC OBSTRUCTIVE PULMONARY DISEASE
  7. METFORMIN [Concomitant]
     Indication: DIABETES MELLITUS
     Dosage: BID
     Route: 048
  8. LEVOTHYROXINE [Concomitant]
     Indication: HYPOTHYROIDISM
     Dosage: QD
     Route: 048
  9. NEXIUM [Concomitant]
     Indication: GASTROOESOPHAGEAL REFLUX DISEASE
     Dosage: QD
     Route: 048
  10. MONTELUKAST [Concomitant]
     Indication: ASTHMA
     Dosage: QD
     Route: 048
  11. XYZAL [Concomitant]
     Indication: HYPERSENSITIVITY
     Dosage: QD
     Route: 048
  12. CRESTOR [Concomitant]
     Indication: HYPERLIPIDAEMIA
     Dosage: QD
     Route: 048
  13. TRICOR [Concomitant]
     Indication: HYPERLIPIDAEMIA
     Dosage: QD
     Route: 048
  14. RESTASIS [Concomitant]
     Indication: DRY EYE
     Dosage: 2 DROPS/EYE QD
     Route: 047
  15. PATANASE [Concomitant]
     Indication: HYPERSENSITIVITY
     Dosage: 2 SPRAYS EACH NOSTRIL BID
     Route: 045
  16. ASPIRIN [Concomitant]
     Dosage: QD
     Route: 048
  17. CALCIUM [Concomitant]
     Indication: VITAMIN SUPPLEMENTATION
     Dosage: QD
     Route: 048
  18. VITAMIN D3 [Concomitant]
     Indication: SUPPLEMENTATION THERAPY
     Route: 048
  19. FISH OIL WITH OMEGA 3 [Concomitant]
     Indication: VITAMIN SUPPLEMENTATION
     Dosage: QD
  20. MOVE FREE [Concomitant]
     Indication: ARTHRITIS
     Dosage: 1 TABLET QD
     Route: 048

REACTIONS (5)
  - Depression suicidal [Recovering/Resolving]
  - Muscular weakness [Recovering/Resolving]
  - Muscular weakness [Recovering/Resolving]
  - Fatigue [Recovering/Resolving]
  - Depression [Recovering/Resolving]
